FAERS Safety Report 7755176-5 (Version None)
Quarter: 2011Q3

REPORT INFORMATION
  Report Type: 
  Country: None (occurrence: None)
  Receive Date: 20110916
  Receipt Date: 20110627
  Transmission Date: 20111222
  Serious: No
  Sender: FDA-Public Use
  Company Number: US-GLAXOSMITHKLINE-A0919232A

PATIENT
  Age: 52 Year
  Sex: Female

DRUGS (7)
  1. SEROQUEL XR [Concomitant]
  2. CYMBALTA [Concomitant]
  3. NEXIUM [Concomitant]
  4. ROMIPLOSTIM [Concomitant]
     Indication: IDIOPATHIC THROMBOCYTOPENIC PURPURA
  5. CELEBREX [Concomitant]
  6. PROMACTA [Suspect]
     Indication: IDIOPATHIC THROMBOCYTOPENIC PURPURA
     Dosage: 50MG PER DAY
     Route: 048
     Dates: start: 20110201, end: 20110425
  7. HYDROCODONE [Concomitant]

REACTIONS (1)
  - DRUG INEFFECTIVE [None]
